FAERS Safety Report 10555079 (Version 1)
Quarter: 2014Q4

REPORT INFORMATION
  Report Type: Spontaneous
  Country: US (occurrence: US)
  Receive Date: 20141030
  Receipt Date: 20141030
  Transmission Date: 20150529
  Serious: Yes (Other)
  Sender: FDA-Public Use
  Company Number: US-ALLERGAN-1422353US

PATIENT
  Age: 60 Year
  Sex: Female

DRUGS (1)
  1. LATISSE [Suspect]
     Active Substance: BIMATOPROST
     Indication: GROWTH OF EYELASHES
     Dosage: SATURATE ONE BRUSH
     Route: 061
     Dates: start: 2013

REACTIONS (3)
  - Road traffic accident [Unknown]
  - Drug ineffective [Unknown]
  - Wrong technique in drug usage process [Unknown]
